FAERS Safety Report 9213025 (Version 1)
Quarter: 2013Q1

REPORT INFORMATION
  Report Type: Spontaneous
  Country: US (occurrence: None)
  Receive Date: 20120820
  Receipt Date: 20120820
  Transmission Date: 20140127
  Serious: No
  Sender: FDA-Public Use
  Company Number: 1000036700

PATIENT
  Age: 43 Year
  Sex: Female

DRUGS (3)
  1. VIIBRYD [Suspect]
     Indication: DEPRESSION
     Route: 048
     Dates: start: 20120502, end: 20120503
  2. CLONOPIN (CLONAZEPAM) (CLONAZEPAM) [Concomitant]
  3. PROTONIX (PANTOPRAZOLE SODIUM SESQUIHYDRATE) (PANTOPRAZOLE SODIUM SESQUIHYDRATE) [Concomitant]

REACTIONS (6)
  - Diarrhoea [None]
  - Nausea [None]
  - Dyspepsia [None]
  - Decreased appetite [None]
  - Pruritus [None]
  - Insomnia [None]
